FAERS Safety Report 4466461-7 (Version None)
Quarter: 2004Q4

REPORT INFORMATION
  Report Type: 
  Country: None (occurrence: None)
  Receive Date: 20041005
  Receipt Date: 20040930
  Transmission Date: 20050328
  Serious: Yes (Disabling)
  Sender: FDA-Public Use
  Company Number: US-MERCK-0410USA00078

PATIENT
  Sex: Female

DRUGS (1)
  1. VIOXX [Suspect]
     Indication: BACK PAIN
     Route: 048
     Dates: start: 20040702, end: 20040928

REACTIONS (5)
  - BONE DISORDER [None]
  - DYSPNOEA [None]
  - INFLAMMATION [None]
  - LUNG DISORDER [None]
  - RASH [None]
